FAERS Safety Report 7425929-1 (Version None)
Quarter: 2011Q2

REPORT INFORMATION
  Report Type: 
  Country: None (occurrence: None)
  Receive Date: 20110420
  Receipt Date: 20081001
  Transmission Date: 20111010
  Serious: Yes (Death, Hospitalization, Other)
  Sender: FDA-Public Use
  Company Number: US-BAYER-2011-008790

PATIENT
  Age: 78 Year
  Sex: Female
  Weight: 84 kg

DRUGS (25)
  1. EPINEPHRINE [Concomitant]
     Dosage: 8MG/250CC
     Route: 042
  2. FUROSEMIDE [Concomitant]
     Dosage: 40 MG, QD
     Route: 048
  3. FUROSEMIDE [Concomitant]
     Dosage: 10 MG
     Route: 042
     Dates: start: 20010426, end: 20010426
  4. BIAXIN [Concomitant]
     Dosage: 500 MG
     Route: 048
  5. MANNITOL [Concomitant]
     Dosage: 25 GM
     Route: 042
     Dates: start: 20010423, end: 20010423
  6. PRILOSEC [Concomitant]
     Dosage: 40 MG, BID
     Route: 048
  7. PRIMACOR [Concomitant]
     Dosage: 20MG/100CC
     Route: 042
  8. TRASYLOL [Suspect]
     Indication: VALVULOPLASTY CARDIAC
     Dosage: 100 ML PRIME
     Route: 050
     Dates: start: 20010423, end: 20010423
  9. NADOLOL [Concomitant]
     Dosage: 20 MG, QD
     Route: 048
  10. ACETYLSALICYLIC ACID SRT [Concomitant]
     Dosage: 325MG
     Route: 048
     Dates: start: 20010423
  11. LEVOPHED [Concomitant]
     Dosage: 8 MG/200 CC
     Route: 042
     Dates: start: 20010423, end: 20010423
  12. DOPAMINE HCL [Concomitant]
     Dosage: UNK
     Route: 042
     Dates: start: 20010423, end: 20010423
  13. PRINIVIL [Concomitant]
     Dosage: 40 MG, QD
     Route: 048
  14. VANCOMYCIN [Concomitant]
     Dosage: 1 GM
     Route: 042
     Dates: start: 20010423, end: 20010425
  15. HEPARIN [Concomitant]
     Dosage: 5000U
     Route: 042
     Dates: start: 20010423, end: 20010423
  16. NITROGLYCERIN [Concomitant]
  17. ALBUMIN (HUMAN) [Concomitant]
     Dosage: 25 GM
     Route: 042
     Dates: start: 20010423, end: 20010423
  18. TRASYLOL [Suspect]
     Indication: CORONARY ARTERY BYPASS
     Dosage: 1 ML
     Route: 042
     Dates: start: 20010423, end: 20010423
  19. ZOCOR [Concomitant]
     Dosage: 10 MG, QD
     Route: 048
  20. TRASYLOL [Suspect]
     Dosage: 25ML/HR
     Route: 041
     Dates: start: 20010423, end: 20010423
  21. PROPOX-N [Concomitant]
     Dosage: 100-650 MG
     Route: 048
  22. GENTAMICIN [Concomitant]
     Dosage: 80 MG
     Route: 042
     Dates: start: 20010423, end: 20010425
  23. AVANDIA [Concomitant]
     Dosage: 4 MG, UNK
     Route: 048
  24. ISOSORBIDE DINITRATE [Concomitant]
     Dosage: 20 MG, QD
     Route: 048
  25. ZESTORETIC [Concomitant]
     Dosage: 20/25/1 DAILY
     Route: 048

REACTIONS (10)
  - ANXIETY [None]
  - RENAL FAILURE [None]
  - DEATH [None]
  - INJURY [None]
  - NERVOUSNESS [None]
  - PAIN [None]
  - DEPRESSION [None]
  - EMOTIONAL DISTRESS [None]
  - FEAR [None]
  - FEAR OF DEATH [None]
